FAERS Safety Report 18258141 (Version 1)
Quarter: 2020Q3

REPORT INFORMATION
  Report Type: Report from Study
  Country: CA (occurrence: CA)
  Receive Date: 20200911
  Receipt Date: 20200911
  Transmission Date: 20201103
  Serious: Yes (Hospitalization)
  Sender: FDA-Public Use
  Company Number: CA-JNJFOC-20200241574

PATIENT
  Age: 17 Year
  Sex: Male
  Weight: 69 kg

DRUGS (2)
  1. REMICADE [Suspect]
     Active Substance: INFLIXIMAB
     Indication: COLITIS ULCERATIVE
     Route: 042
  2. REMICADE [Suspect]
     Active Substance: INFLIXIMAB
     Indication: CROHN^S DISEASE
     Dosage: PATIENT RECEIVED 2ND INFUSION ON 26?FEB?2020.
     Route: 042
     Dates: start: 20200216

REACTIONS (2)
  - Haematochezia [Unknown]
  - Influenza [Unknown]

NARRATIVE: CASE EVENT DATE: 20200225
